FAERS Safety Report 5410861-5 (Version None)
Quarter: 2007Q3

REPORT INFORMATION
  Report Type: 
  Country: None (occurrence: None)
  Receive Date: 20070810
  Receipt Date: 20070731
  Transmission Date: 20080115
  Serious: Yes (Hospitalization)
  Sender: FDA-Public Use
  Company Number: PHEH2007US10537

PATIENT
  Sex: Female

DRUGS (4)
  1. TRICOR [Concomitant]
     Dosage: 145 MG, UNK
     Dates: start: 20040101
  2. KLONOPIN [Concomitant]
     Dates: start: 20060101
  3. ZELNORM [Suspect]
     Indication: IRRITABLE BOWEL SYNDROME
     Dosage: 6 MG, BID
     Route: 048
     Dates: start: 20050101, end: 20070301
  4. ALTACE [Concomitant]
     Dosage: 10 MG, UNK
     Dates: start: 20040101

REACTIONS (8)
  - ABDOMINAL PAIN UPPER [None]
  - FEELING ABNORMAL [None]
  - GALLBLADDER INJURY [None]
  - GASTRIC INFECTION [None]
  - GASTROINTESTINAL ULCER [None]
  - HEADACHE [None]
  - MUSCLE SPASMS [None]
  - SCAR [None]
